FAERS Safety Report 8028885-0 (Version None)
Quarter: 2012Q1

REPORT INFORMATION
  Report Type: 
  Country: None (occurrence: None)
  Receive Date: 20120106
  Receipt Date: 20110624
  Transmission Date: 20120608
  Serious: Yes (Hospitalization, Other)
  Sender: FDA-Public Use
  Company Number: JP-GLAXOSMITHKLINE-B0729377A

PATIENT
  Sex: Male

DRUGS (5)
  1. RITONAVIR [Suspect]
     Indication: PRODUCT USED FOR UNKNOWN INDICATION
     Route: 048
  2. TRUVADA [Concomitant]
     Indication: HIV INFECTION
     Dosage: 1IUAX PER DAY
     Route: 048
     Dates: start: 20090108
  3. REYATAZ [Concomitant]
     Indication: HIV INFECTION
     Dosage: 300MG PER DAY
     Route: 048
     Dates: start: 20090108, end: 20110821
  4. HYDROCORTISONE [Concomitant]
     Route: 048
  5. SERETIDE (50MCG/100MCG) [Suspect]
     Indication: ASTHMA
     Dosage: 200MCG PER DAY
     Route: 055
     Dates: start: 20100326, end: 20110623

REACTIONS (11)
  - BACK PAIN [None]
  - CENTRAL OBESITY [None]
  - DRUG INTERACTION [None]
  - DRUG LEVEL INCREASED [None]
  - WEIGHT INCREASED [None]
  - ADRENAL INSUFFICIENCY [None]
  - CUSHING'S SYNDROME [None]
  - OSTEOPOROSIS [None]
  - THORACIC VERTEBRAL FRACTURE [None]
  - ACNE [None]
  - CUSHINGOID [None]
